FAERS Safety Report 20540270 (Version 1)
Quarter: 2022Q1

REPORT INFORMATION
  Report Type: Report from Study
  Country: CA (occurrence: CA)
  Receive Date: 20220302
  Receipt Date: 20220302
  Transmission Date: 20220424
  Serious: Yes (Other)
  Sender: FDA-Public Use
  Company Number: CA-JNJFOC-20211131877

PATIENT

DRUGS (1)
  1. DITROPAN [Suspect]
     Active Substance: OXYBUTYNIN CHLORIDE
     Indication: Hypertonic bladder
     Dosage: }= 15 MG
     Route: 065

REACTIONS (3)
  - Delirium [Unknown]
  - Fracture [Unknown]
  - Fall [Unknown]
